FAERS Safety Report 10249480 (Version 4)
Quarter: 2015Q2

REPORT INFORMATION
  Report Type: Report from Study
  Country: GR (occurrence: GR)
  Receive Date: 20140620
  Receipt Date: 20150429
  Transmission Date: 20150821
  Serious: Yes (Other)
  Sender: FDA-Public Use
  Company Number: GR-JNJFOC-20140611481

PATIENT
  Age: 62 Year
  Sex: Male

DRUGS (18)
  1. COLCHICINE. [Concomitant]
     Active Substance: COLCHICINE
     Indication: PSORIASIS
     Route: 048
     Dates: start: 20131129, end: 20140817
  2. IMUNOFAR [Concomitant]
     Indication: PSORIASIS
     Route: 065
     Dates: start: 20140808, end: 20140817
  3. CYMBALTA [Concomitant]
     Active Substance: DULOXETINE HYDROCHLORIDE
     Indication: DEPRESSION
     Route: 065
     Dates: start: 20131222
  4. XANAX [Concomitant]
     Active Substance: ALPRAZOLAM
     Indication: DEPRESSION
     Route: 065
     Dates: start: 2012
  5. LOBIVON [Concomitant]
     Active Substance: NEBIVOLOL HYDROCHLORIDE
     Indication: HYPERTENSION
     Route: 065
     Dates: start: 20111026
  6. SALOSPIR-A [Concomitant]
     Indication: PROPHYLAXIS
     Route: 065
     Dates: start: 20111026
  7. ZOLOTRIN [Concomitant]
     Active Substance: SERTRALINE HYDROCHLORIDE
     Indication: DEPRESSION
     Route: 065
     Dates: start: 20131220, end: 20131222
  8. BIFONAZOLE [Concomitant]
     Active Substance: BIFONAZOLE
     Indication: FUNGAL INFECTION
     Route: 065
     Dates: start: 20131203, end: 20131217
  9. GLUCOPHAGE [Concomitant]
     Active Substance: METFORMIN HYDROCHLORIDE
     Indication: DIABETES MELLITUS
     Route: 065
     Dates: start: 20111026
  10. CYMBALTA [Concomitant]
     Active Substance: DULOXETINE HYDROCHLORIDE
     Indication: DEPRESSION
     Route: 065
     Dates: start: 2013, end: 20131219
  11. DOVOBET [Concomitant]
     Active Substance: BETAMETHASONE\CALCIPOTRIENE
     Indication: PSORIASIS
     Route: 065
     Dates: start: 2011
  12. NEXIUM [Concomitant]
     Active Substance: ESOMEPRAZOLE MAGNESIUM
     Indication: PROPHYLAXIS
     Route: 065
     Dates: start: 20131204, end: 20131204
  13. NEOTIGASON [Concomitant]
     Active Substance: ACITRETIN
     Indication: PSORIASIS
     Route: 065
     Dates: start: 20140808, end: 20140817
  14. CLOBETASOL PROPIONATE. [Concomitant]
     Active Substance: CLOBETASOL PROPIONATE
     Indication: PSORIASIS
     Route: 065
     Dates: start: 20131126
  15. LEPUR [Concomitant]
     Active Substance: SIMVASTATIN
     Indication: DYSLIPIDAEMIA
     Route: 065
     Dates: start: 2012, end: 20140808
  16. REMICADE [Suspect]
     Active Substance: INFLIXIMAB
     Indication: PSORIASIS
     Dosage: 100MG/VIAL??SECOND AND THE LAST DOSE WAS ON 18-DEC-2013
     Route: 042
     Dates: start: 20131204, end: 20131218
  17. MIXTARD HUMAN 70/30 [Concomitant]
     Active Substance: INSULIN HUMAN
     Indication: DIABETES MELLITUS
     Route: 065
     Dates: start: 20111026
  18. XOZAL [Concomitant]
     Active Substance: LEVOCETIRIZINE
     Indication: PRURITUS
     Dosage: UPTO 20 MG
     Route: 065
     Dates: start: 20131204, end: 20131204

REACTIONS (1)
  - Tuberculosis [Recovered/Resolved]

NARRATIVE: CASE EVENT DATE: 20140114
